FAERS Safety Report 7056588-8 (Version None)
Quarter: 2010Q4

REPORT INFORMATION
  Report Type: 
  Country: None (occurrence: None)
  Receive Date: 20101021
  Receipt Date: 20101011
  Transmission Date: 20110411
  Serious: Yes (Hospitalization, Other)
  Sender: FDA-Public Use
  Company Number: US-MERCK-0708USA00294

PATIENT
  Age: 43 Year
  Sex: Female
  Weight: 71 kg

DRUGS (5)
  1. FOSAMAX [Suspect]
     Indication: BONE DENSITY DECREASED
     Route: 048
     Dates: start: 19950101, end: 20050101
  2. FOSAMAX [Suspect]
     Route: 048
     Dates: start: 19990720, end: 20041203
  3. FOSAMAX [Suspect]
     Route: 048
     Dates: start: 19990720, end: 20050501
  4. FOSAMAX [Suspect]
     Route: 048
     Dates: start: 19990720, end: 20041203
  5. PREVACID [Concomitant]
     Route: 065
     Dates: start: 19770101

REACTIONS (31)
  - ABSCESS [None]
  - ALLERGY TO METALS [None]
  - ANAEMIA [None]
  - BONE DENSITY DECREASED [None]
  - BRONCHITIS [None]
  - BURSITIS [None]
  - CARDIOVASCULAR DISORDER [None]
  - DENTAL CARIES [None]
  - DEPRESSION [None]
  - DRUG HYPERSENSITIVITY [None]
  - GINGIVAL BLEEDING [None]
  - HIATUS HERNIA [None]
  - HYPERTENSION [None]
  - IMMUNE SYSTEM DISORDER [None]
  - INADEQUATE DIET [None]
  - LUPUS NEPHRITIS [None]
  - MOUTH HAEMORRHAGE [None]
  - MUSCULOSKELETAL PAIN [None]
  - NAUSEA [None]
  - OEDEMA PERIPHERAL [None]
  - ORAL INFECTION [None]
  - OSTEONECROSIS OF JAW [None]
  - OSTEOPENIA [None]
  - PYELONEPHRITIS [None]
  - SENSITIVITY OF TEETH [None]
  - SYSTEMIC LUPUS ERYTHEMATOSUS [None]
  - TEMPOROMANDIBULAR JOINT SYNDROME [None]
  - TENDON RUPTURE [None]
  - TOOTH ABSCESS [None]
  - URINARY TRACT INFECTION [None]
  - VOMITING [None]
